FAERS Safety Report 6552884-9 (Version None)
Quarter: 2010Q1

REPORT INFORMATION
  Report Type: 
  Country: None (occurrence: None)
  Receive Date: 20100122
  Receipt Date: 20100112
  Transmission Date: 20100710
  Serious: Yes (Other)
  Sender: FDA-Public Use
  Company Number: 310001L10ISR

PATIENT
  Age: 31 Year
  Sex: Female

DRUGS (3)
  1. GONAL-F [Suspect]
     Dosage: 150 IU, 1 IN 1 DAYS
     Route: 015
  2. CETROTIDE [Suspect]
  3. MENOTROPINS [Concomitant]

REACTIONS (4)
  - ABORTION INDUCED [None]
  - DRUG EXPOSURE DURING PREGNANCY [None]
  - GESTATIONAL DIABETES [None]
  - MULTIPLE PREGNANCY [None]
